FAERS Safety Report 4757819-7 (Version None)
Quarter: 2005Q3

REPORT INFORMATION
  Report Type: 
  Country: None (occurrence: None)
  Receive Date: 20050830
  Receipt Date: 20050822
  Transmission Date: 20060218
  Serious: Yes (Other)
  Sender: FDA-Public Use
  Company Number: HQWYE052122AUG05

PATIENT
  Age: 13 Year
  Sex: Female

DRUGS (1)
  1. TRIQUILAR (LEVONORGESTREL/ETHINYL ESTRADIOL, TABLET) [Suspect]
     Dosage: 1 TABLET ORAL
     Route: 048
     Dates: start: 20050501

REACTIONS (6)
  - BLOOD PRESSURE DECREASED [None]
  - DIZZINESS [None]
  - LOSS OF CONSCIOUSNESS [None]
  - METRORRHAGIA [None]
  - SYNCOPE [None]
  - VOMITING [None]
